FAERS Safety Report 19752630 (Version 1)
Quarter: 2021Q3

REPORT INFORMATION
  Report Type: Spontaneous
  Country: US (occurrence: US)
  Receive Date: 20210827
  Receipt Date: 20210827
  Transmission Date: 20211014
  Serious: Yes (Other)
  Sender: FDA-Public Use
  Company Number: US-ASTELLAS-2021US030014

PATIENT
  Sex: Male

DRUGS (2)
  1. PADCEV [Suspect]
     Active Substance: ENFORTUMAB VEDOTIN-EJFV
     Dosage: DOSE ADJUSTMENT, CYCLIC (DAYS 1, 8, 15 OF 28 DAY CYCLE)
     Route: 042
  2. PADCEV [Suspect]
     Active Substance: ENFORTUMAB VEDOTIN-EJFV
     Indication: TRANSITIONAL CELL CARCINOMA
     Dosage: 1.25 MG/KG, CYCLIC (DAYS 1, 8, 15 OF 28 DAY CYCLE)
     Route: 042
     Dates: start: 20201124

REACTIONS (5)
  - Gait disturbance [Not Recovered/Not Resolved]
  - Foot fracture [Unknown]
  - Neuropathy peripheral [Not Recovered/Not Resolved]
  - Fall [Unknown]
  - Lacrimation increased [Not Recovered/Not Resolved]
